FAERS Safety Report 13355540 (Version 2)
Quarter: 2017Q1

REPORT INFORMATION
  Report Type: Spontaneous
  Country: US (occurrence: US)
  Receive Date: 20170321
  Receipt Date: 20170322
  Transmission Date: 20170429
  Serious: No
  Sender: FDA-Public Use
  Company Number: US-BAYER-2017-053285

PATIENT
  Age: 5 Year
  Sex: Female
  Weight: 24.94 kg

DRUGS (2)
  1. CLARITIN LIQUI-GELS [Suspect]
     Active Substance: LORATADINE
     Indication: NASOPHARYNGITIS
     Dosage: 5 DF, ONCE
     Route: 048
     Dates: start: 20170320, end: 20170320
  2. CLARITIN LIQUI-GELS [Suspect]
     Active Substance: LORATADINE
     Indication: HYPERSENSITIVITY
     Dosage: 1 DF, QD
     Route: 048
     Dates: start: 2016, end: 20170319

REACTIONS (2)
  - Accidental exposure to product by child [Unknown]
  - Product use issue [Unknown]

NARRATIVE: CASE EVENT DATE: 20170320
